FAERS Safety Report 5058465-0 (Version None)
Quarter: 2006Q3

REPORT INFORMATION
  Report Type: 
  Country: None (occurrence: None)
  Receive Date: 20060721
  Receipt Date: 20060710
  Transmission Date: 20061208
  Serious: Yes (Death, Hospitalization)
  Sender: FDA-Public Use
  Company Number: JP-JNJFOC-20060605836

PATIENT
  Sex: Female
  Weight: 40 kg

DRUGS (9)
  1. REMICADE [Suspect]
     Route: 042
  2. REMICADE [Suspect]
     Route: 042
  3. REMICADE [Suspect]
     Indication: RHEUMATOID ARTHRITIS
     Route: 042
  4. RHEUMATREX [Suspect]
     Indication: RHEUMATOID ARTHRITIS
     Route: 048
  5. CELESTONE [Concomitant]
  6. TAGAMET [Concomitant]
  7. BONALON [Concomitant]
     Route: 048
  8. FOLIAMIN [Concomitant]
  9. MOHRUS TAPE [Concomitant]
     Route: 047

REACTIONS (1)
  - INTERSTITIAL LUNG DISEASE [None]
